FAERS Safety Report 7167538-8 (Version None)
Quarter: 2010Q4

REPORT INFORMATION
  Report Type: 
  Country: None (occurrence: None)
  Receive Date: 20101216
  Receipt Date: 20100312
  Transmission Date: 20110411
  Serious: No
  Sender: FDA-Public Use
  Company Number: A0849952A

PATIENT
  Age: 40 Year

DRUGS (1)
  1. COMMIT [Suspect]

REACTIONS (1)
  - DIARRHOEA [None]
